FAERS Safety Report 5766591-3 (Version None)
Quarter: 2008Q2

REPORT INFORMATION
  Report Type: 
  Country: None (occurrence: None)
  Receive Date: 20080610
  Receipt Date: 20080610
  Transmission Date: 20081010
  Serious: Yes (Hospitalization)
  Sender: FDA-Public Use
  Company Number: None

PATIENT
  Age: 49 Year
  Sex: Female

DRUGS (2)
  1. INFLIXIMAB 100 MG CENTOCOR [Suspect]
     Indication: CROHN'S DISEASE
     Dosage: 100 MG ONCE IV
     Route: 042
     Dates: start: 20060601, end: 20060601
  2. INFLIXIMAB 100 MG CENTOCOR [Suspect]
     Indication: CROHN'S DISEASE
     Dosage: 100 MG ONCE IV
     Route: 042
     Dates: start: 20080603, end: 20080603

REACTIONS (2)
  - CONVULSION [None]
  - SIMILAR REACTION ON PREVIOUS EXPOSURE TO DRUG [None]
